FAERS Safety Report 11383335 (Version 1)
Quarter: 2015Q3

REPORT INFORMATION
  Report Type: Spontaneous
  Country: FR (occurrence: FR)
  Receive Date: 20150814
  Receipt Date: 20150814
  Transmission Date: 20151125
  Serious: Yes (Other)
  Sender: FDA-Public Use
  Company Number: FR-ABBVIE-15P-056-1443850-00

PATIENT
  Age: 68 Year
  Sex: Female

DRUGS (1)
  1. DEPAKINE [Suspect]
     Active Substance: VALPROATE SODIUM
     Indication: EPILEPSY
     Route: 048
     Dates: start: 2013, end: 201506

REACTIONS (1)
  - Parkinsonism [Unknown]

NARRATIVE: CASE EVENT DATE: 2015
